FAERS Safety Report 24968735 (Version 1)
Quarter: 2025Q1

REPORT INFORMATION
  Report Type: Report from Study
  Country: US (occurrence: US)
  Receive Date: 20250214
  Receipt Date: 20250214
  Transmission Date: 20250409
  Serious: No
  Sender: AMNEAL
  Company Number: US-AMNEAL PHARMACEUTICALS-2024-AMRX-01768

PATIENT
  Sex: Female

DRUGS (3)
  1. CARBIDOPA\LEVODOPA [Suspect]
     Active Substance: CARBIDOPA\LEVODOPA
     Indication: Product used for unknown indication
     Dosage: (23.75-95 MG) 3 CAPSULES, 3 /DAY (TAKE 3 CAPSULES THREE TIMES A DAY PLUS 1 CAPSULE EVERY NIGHT AT BE
     Route: 048
  2. CARBIDOPA\LEVODOPA [Suspect]
     Active Substance: CARBIDOPA\LEVODOPA
     Dosage: (23.75-95 MG) 3 CAPSULES, 3 /DAY (TAKE 3 CAPSULES BY MOUTH 3 TIMES A DAY, THEN 1 TO 3 CAPSULES AT BE
     Route: 048
     Dates: start: 20240430
  3. CARBIDOPA\LEVODOPA [Suspect]
     Active Substance: CARBIDOPA\LEVODOPA
     Dosage: 3 CAPSULES, 3 /DAY
     Route: 048
     Dates: start: 20240515

REACTIONS (2)
  - Insomnia [Unknown]
  - Dizziness [Unknown]
